FAERS Safety Report 6466257-0 (Version None)
Quarter: 2009Q4

REPORT INFORMATION
  Report Type: 
  Country: None (occurrence: None)
  Receive Date: 20091202
  Receipt Date: 20091124
  Transmission Date: 20100525
  Serious: Yes (Other)
  Sender: FDA-Public Use
  Company Number: PHHY2009JP52155

PATIENT

DRUGS (1)
  1. ZOMETA [Suspect]
     Indication: PROPHYLAXIS
     Route: 041

REACTIONS (1)
  - OSTEONECROSIS [None]
